FAERS Safety Report 5877765-5 (Version None)
Quarter: 2008Q3

REPORT INFORMATION
  Report Type: 
  Country: None (occurrence: None)
  Receive Date: 20080911
  Receipt Date: 20080829
  Transmission Date: 20090109
  Serious: Yes (Hospitalization)
  Sender: FDA-Public Use
  Company Number: FR-ELI_LILLY_AND_COMPANY-FR200808006365

PATIENT
  Sex: Female

DRUGS (5)
  1. ZYPREXA [Suspect]
     Dosage: 5 MG, UNK
     Route: 048
  2. FORLAX [Concomitant]
     Dosage: UNK, UNK
     Route: 048
  3. XANAX [Concomitant]
     Dosage: 0.75 MG, DAILY (1/D)
     Route: 048
  4. TEMERIT   /01339101/ [Concomitant]
     Dosage: 2.5 MG, DAILY (1/D)
     Route: 048
     Dates: start: 20080201
  5. ACUPAN [Concomitant]
     Dosage: 80 MG, DAILY (1/D)
     Route: 058

REACTIONS (3)
  - EXTRAPYRAMIDAL DISORDER [None]
  - FALL [None]
  - RHABDOMYOLYSIS [None]
